FAERS Safety Report 7539046-3 (Version None)
Quarter: 2011Q2

REPORT INFORMATION
  Report Type: 
  Country: None (occurrence: None)
  Receive Date: 20110610
  Receipt Date: 20010810
  Transmission Date: 20111010
  Serious: Yes (Death)
  Sender: FDA-Public Use
  Company Number: PHFR2001GB02191

PATIENT
  Sex: Male

DRUGS (3)
  1. MODECATE ^SQUIBB^ [Concomitant]
     Indication: PSYCHOTIC DISORDER
     Dosage: 25 MG, BIW
     Route: 030
     Dates: start: 19951102
  2. LOFEPRAMINE [Concomitant]
     Dosage: 140 MG, QD
     Route: 048
     Dates: start: 19951102
  3. CLOZAPINE [Suspect]
     Indication: SCHIZOPHRENIA
     Dosage: 600 MG, QD
     Route: 048
     Dates: start: 19950101

REACTIONS (3)
  - CIRCULATORY COLLAPSE [None]
  - MYOCARDIAL INFARCTION [None]
  - CORONARY ARTERY DISEASE [None]
